FAERS Safety Report 5737522-7 (Version None)
Quarter: 2008Q2

REPORT INFORMATION
  Report Type: 
  Country: None (occurrence: None)
  Receive Date: 20080514
  Receipt Date: 20080506
  Transmission Date: 20081010
  Serious: Yes (Hospitalization, Other)
  Sender: FDA-Public Use
  Company Number: US-BAYER-200818138NA

PATIENT
  Age: 71 Year
  Sex: Male

DRUGS (2)
  1. AVELOX [Suspect]
     Indication: PNEUMONIA
     Dosage: TOTAL DAILY DOSE: 400 MG  UNIT DOSE: 400 MG
     Route: 048
     Dates: start: 20080415, end: 20080415
  2. ANTIBIOTIC [NOS] [Concomitant]
     Indication: PNEUMONIA

REACTIONS (1)
  - LOSS OF CONSCIOUSNESS [None]
